FAERS Safety Report 12118115 (Version 1)
Quarter: 2016Q1

REPORT INFORMATION
  Report Type: Spontaneous
  Country: IT (occurrence: IT)
  Receive Date: 20160226
  Receipt Date: 20160226
  Transmission Date: 20160526
  Serious: Yes (Other)
  Sender: FDA-Public Use
  Company Number: IT-ACCORD-038034

PATIENT
  Age: 78 Year
  Sex: Male
  Weight: 68 kg

DRUGS (1)
  1. GEMCITABINE/GEMCITABINE HYDROCHLORIDE [Suspect]
     Active Substance: GEMCITABINE\GEMCITABINE HYDROCHLORIDE
     Indication: TRANSITIONAL CELL CANCER OF THE RENAL PELVIS AND URETER RECURRENT
     Dosage: 1500 MG TOTAL WEEKLY AT DAY 1 AND DAY 8 EVERY 21 DAYS
     Route: 042
     Dates: start: 20150910, end: 20160115

REACTIONS (2)
  - Retinal pigment epitheliopathy [Unknown]
  - Off label use [Unknown]

NARRATIVE: CASE EVENT DATE: 20151130
